FAERS Safety Report 9857215 (Version 2)
Quarter: 2014Q1

REPORT INFORMATION
  Report Type: Not Available
  Country: US (occurrence: US)
  Receive Date: 20140130
  Receipt Date: 20140206
  Transmission Date: 20141002
  Serious: Yes (Death, Hospitalization)
  Sender: FDA-Public Use
  Company Number: US-ONYX-2014-0198

PATIENT
  Age: 58 Year
  Sex: Female

DRUGS (1)
  1. KYPROLIS [Suspect]
     Indication: PRODUCT USED FOR UNKNOWN INDICATION
     Dates: start: 20131230, end: 20140114

REACTIONS (4)
  - Pneumonia [Fatal]
  - Acute respiratory distress syndrome [Unknown]
  - Influenza [Unknown]
  - White blood cell count decreased [Unknown]
